FAERS Safety Report 9388758 (Version 2)
Quarter: 2013Q3

REPORT INFORMATION
  Report Type: Report from Study
  Country: JP (occurrence: JP)
  Receive Date: 20130708
  Receipt Date: 20130829
  Transmission Date: 20140515
  Serious: Yes (Death)
  Sender: FDA-Public Use
  Company Number: JP-GLAXOSMITHKLINE-B0904672A

PATIENT
  Age: 81 Year
  Sex: Female
  Weight: 41 kg

DRUGS (16)
  1. REVOLADE [Suspect]
     Indication: IMMUNE THROMBOCYTOPENIC PURPURA
     Route: 048
     Dates: start: 20121213, end: 20121227
  2. REVOLADE [Suspect]
     Indication: IMMUNE THROMBOCYTOPENIC PURPURA
     Route: 048
     Dates: start: 20121228, end: 20130109
  3. REVOLADE [Suspect]
     Indication: IMMUNE THROMBOCYTOPENIC PURPURA
     Route: 048
     Dates: start: 20130110, end: 20130204
  4. REVOLADE [Suspect]
     Indication: IMMUNE THROMBOCYTOPENIC PURPURA
     Route: 048
     Dates: start: 20130205, end: 20130218
  5. REVOLADE [Suspect]
     Indication: IMMUNE THROMBOCYTOPENIC PURPURA
     Route: 048
     Dates: start: 20130219, end: 20130222
  6. VENILON [Concomitant]
     Indication: IMMUNE THROMBOCYTOPENIC PURPURA
     Dates: start: 20121213, end: 20121214
  7. PREDONINE [Concomitant]
     Indication: IMMUNE THROMBOCYTOPENIC PURPURA
     Route: 048
     Dates: start: 20121217, end: 20130109
  8. PREDONINE [Concomitant]
     Indication: IMMUNE THROMBOCYTOPENIC PURPURA
     Route: 048
     Dates: start: 20130110, end: 20130122
  9. PREDONINE [Concomitant]
     Indication: IMMUNE THROMBOCYTOPENIC PURPURA
     Route: 048
     Dates: start: 20130123, end: 20130204
  10. PREDONINE [Concomitant]
     Indication: IMMUNE THROMBOCYTOPENIC PURPURA
     Route: 048
     Dates: start: 20130205, end: 20130222
  11. THYRADIN S [Concomitant]
     Route: 048
  12. SUNRYTHM [Concomitant]
     Route: 048
     Dates: start: 20130117
  13. BAKTAR [Concomitant]
     Indication: PROPHYLAXIS
     Route: 048
     Dates: start: 20121217
  14. OMEPRAZOLE [Concomitant]
     Indication: PROPHYLAXIS
     Route: 048
     Dates: start: 20121217
  15. SEDIEL [Concomitant]
     Route: 048
  16. AMLODIPINE [Concomitant]
     Route: 048

REACTIONS (2)
  - Pulmonary embolism [Fatal]
  - Atrial fibrillation [Recovered/Resolved]
